FAERS Safety Report 8406814-5 (Version None)
Quarter: 2012Q2

REPORT INFORMATION
  Report Type: 
  Country: None (occurrence: None)
  Receive Date: 20120529
  Receipt Date: 19941005
  Transmission Date: 20120825
  Serious: Yes (Death)
  Sender: FDA-Public Use
  Company Number: 002188

PATIENT
  Age: 70 Year
  Sex: Female

DRUGS (8)
  1. PLETAL [Suspect]
     Dosage: 100 MG, DAILY DOSE, ORAL, 200 MG, DAILY DOSE, ORAL, 100 MG, DAILY DOSE, ORAL
     Route: 048
     Dates: start: 19940922, end: 19940928
  2. PLETAL [Suspect]
     Dosage: 100 MG, DAILY DOSE, ORAL, 200 MG, DAILY DOSE, ORAL, 100 MG, DAILY DOSE, ORAL
     Route: 048
     Dates: start: 19940914, end: 19940921
  3. PLETAL [Suspect]
     Dosage: 100 MG, DAILY DOSE, ORAL, 200 MG, DAILY DOSE, ORAL, 100 MG, DAILY DOSE, ORAL
     Route: 048
     Dates: start: 19940929, end: 19941010
  4. IPRIFLAVONE (IPRIFLAVONE) [Concomitant]
  5. NICERGOLINE (NICERGOLINE) [Concomitant]
  6. CETRAXATE HYDROCHLORIDE (CETRAXATE HYDROCHLORIDE) [Concomitant]
  7. T-3 (T-3) [Concomitant]
  8. CISAPRIDE (CISAPRIDE) [Concomitant]

REACTIONS (2)
  - HAEMATURIA [None]
  - PNEUMONIA STAPHYLOCOCCAL [None]
